FAERS Safety Report 9052193 (Version 1)
Quarter: 2013Q1

REPORT INFORMATION
  Report Type: Spontaneous
  Country: US (occurrence: US)
  Receive Date: 20130206
  Receipt Date: 20130206
  Transmission Date: 20140127
  Serious: No
  Sender: FDA-Public Use
  Company Number: US-BIOGENIDEC-2007BI023610

PATIENT
  Sex: Female

DRUGS (2)
  1. AVONEX [Suspect]
     Indication: MULTIPLE SCLEROSIS
     Route: 030
     Dates: start: 1998, end: 2003
  2. AVONEX [Suspect]
     Indication: MULTIPLE SCLEROSIS
     Route: 030
     Dates: start: 2003, end: 20070907

REACTIONS (5)
  - Splenomegaly [Unknown]
  - Rubber sensitivity [Not Recovered/Not Resolved]
  - Hepatic steatosis [Unknown]
  - Drug hypersensitivity [Not Recovered/Not Resolved]
  - Urticaria [Recovered/Resolved]
